FAERS Safety Report 5822790-3 (Version None)
Quarter: 2008Q3

REPORT INFORMATION
  Report Type: 
  Country: None (occurrence: None)
  Receive Date: 20080725
  Receipt Date: 20080718
  Transmission Date: 20090109
  Serious: Yes (Death)
  Sender: FDA-Public Use
  Company Number: JP-AVENTIS-200812250JP

PATIENT

DRUGS (3)
  1. TAXOTERE [Suspect]
     Route: 041
  2. FLUOROURACIL [Concomitant]
  3. RADIATION [Concomitant]

REACTIONS (1)
  - PNEUMONITIS [None]
